FAERS Safety Report 23673642 (Version 1)
Quarter: 2024Q1

REPORT INFORMATION
  Report Type: Spontaneous
  Country: US (occurrence: None)
  Receive Date: 20240326
  Receipt Date: 20240326
  Transmission Date: 20240410
  Serious: Yes (Hospitalization)
  Sender: FDA-Public Use
  Company Number: None

PATIENT
  Age: 42 Year
  Sex: Female
  Weight: 101.15 kg

DRUGS (2)
  1. ASPIRIN [Suspect]
     Active Substance: ASPIRIN
     Indication: Gestational hypertension
     Dosage: FREQUENCY : DAILY;?
     Route: 048
  2. LABETALOL [Suspect]
     Active Substance: LABETALOL\LABETALOL HYDROCHLORIDE
     Dosage: FREQUENCY : DAILY;?
     Route: 048

REACTIONS (3)
  - Gestational hypertension [None]
  - Hypertension [None]
  - Exposure during pregnancy [None]

NARRATIVE: CASE EVENT DATE: 20240306
